FAERS Safety Report 6625656-4 (Version None)
Quarter: 2010Q1

REPORT INFORMATION
  Report Type: 
  Country: None (occurrence: None)
  Receive Date: 20100305
  Receipt Date: 20100222
  Transmission Date: 20100710
  Serious: Yes (Hospitalization)
  Sender: FDA-Public Use
  Company Number: B0636946A

PATIENT
  Age: 35 Year
  Sex: Female

DRUGS (5)
  1. SUMATRIPTAN SUCCINATE [Suspect]
     Indication: MIGRAINE
     Dosage: 300 MG/ ORAL
     Route: 048
  2. SUMATRIPTAN SUCCINATE [Suspect]
     Indication: MIGRAINE
     Dosage: 12 MG / SUBCUTANEOUS
     Route: 058
  3. IBUPROFEN [Concomitant]
  4. FLUTICASONE PROPIONATE [Concomitant]
  5. CETIRIZINE HYDROCHLORIDE [Concomitant]

REACTIONS (6)
  - COLITIS ISCHAEMIC [None]
  - CONDITION AGGRAVATED [None]
  - MIGRAINE [None]
  - NAUSEA [None]
  - SHIFT TO THE LEFT [None]
  - WHITE BLOOD CELL COUNT INCREASED [None]
